FAERS Safety Report 9951311 (Version 1)
Quarter: 2014Q1

REPORT INFORMATION
  Report Type: Report from Study
  Country: US (occurrence: US)
  Receive Date: 20140304
  Receipt Date: 20140304
  Transmission Date: 20141002
  Serious: No
  Sender: FDA-Public Use
  Company Number: US-ABBVIE-13P-163-1068525-00

PATIENT
  Age: 23 Year
  Sex: Male

DRUGS (2)
  1. HUMIRA [Suspect]
     Indication: CROHN^S DISEASE
     Route: 058
     Dates: start: 2008, end: 2010
  2. HUMIRA [Suspect]
     Route: 058
     Dates: start: 201209

REACTIONS (3)
  - Injection site erythema [Recovering/Resolving]
  - Injection site discomfort [Recovering/Resolving]
  - Crohn^s disease [Unknown]
